FAERS Safety Report 4497397-3 (Version None)
Quarter: 2004Q4

REPORT INFORMATION
  Report Type: 
  Country: None (occurrence: None)
  Receive Date: 20041110
  Receipt Date: 20041001
  Transmission Date: 20050328
  Serious: Yes (Death)
  Sender: FDA-Public Use
  Company Number: 200412254DE

PATIENT
  Age: 70 Year
  Sex: Male
  Weight: 105 kg

DRUGS (5)
  1. CLEXANE [Suspect]
     Route: 058
     Dates: start: 20040901, end: 20040901
  2. AMPICILLIN SODIUM/SULBACTAM SODIUM [Concomitant]
     Route: 042
     Dates: start: 20040901, end: 20040901
  3. NOVALGIN [Concomitant]
     Route: 042
     Dates: start: 20040901, end: 20040901
  4. OMEPRAZOLE [Concomitant]
     Route: 042
     Dates: start: 20040901, end: 20040901
  5. RINGER'S [Concomitant]
     Route: 042
     Dates: start: 20040901, end: 20040901

REACTIONS (4)
  - DRUG INEFFECTIVE [None]
  - PHARMACEUTICAL PRODUCT COMPLAINT [None]
  - POST PROCEDURAL COMPLICATION [None]
  - PULMONARY EMBOLISM [None]
